FAERS Safety Report 21090138 (Version 1)
Quarter: 2022Q3

REPORT INFORMATION
  Report Type: Spontaneous
  Country: None (occurrence: US)
  Receive Date: 20220715
  Receipt Date: 20220715
  Transmission Date: 20221026
  Serious: No
  Sender: FDA-Public Use
  Company Number: US-Sofgen Pharmaceuticals, LLC-2130929

PATIENT
  Age: 50 Year
  Sex: Female

DRUGS (1)
  1. PROGESTERONE [Suspect]
     Active Substance: PROGESTERONE
     Route: 048
     Dates: start: 20210701

REACTIONS (5)
  - Breath odour [Recovered/Resolved]
  - Urine odour abnormal [Unknown]
  - Diarrhoea [Unknown]
  - Abdominal discomfort [Unknown]
  - Skin odour abnormal [Unknown]

NARRATIVE: CASE EVENT DATE: 20220706
